FAERS Safety Report 7888839-1 (Version None)
Quarter: 2011Q4

REPORT INFORMATION
  Report Type: 
  Country: None (occurrence: None)
  Receive Date: 20111103
  Receipt Date: 20111031
  Transmission Date: 20120403
  Serious: Yes (Other)
  Sender: FDA-Public Use
  Company Number: CA-SANOFI-AVENTIS-2011SA055591

PATIENT
  Age: 69 Year
  Sex: Female

DRUGS (9)
  1. ASPIRIN [Concomitant]
     Indication: THROMBOSIS PROPHYLAXIS
     Route: 048
     Dates: start: 20050101
  2. SOLOSTAR [Suspect]
     Dates: start: 20100401
  3. LANTUS [Suspect]
     Route: 058
     Dates: start: 20110822, end: 20110826
  4. REPAGLINIDE [Concomitant]
     Route: 065
  5. AVAPRO [Concomitant]
     Indication: HYPERTENSION
     Route: 048
     Dates: start: 20090101
  6. LANTUS [Suspect]
     Indication: PRODUCT USED FOR UNKNOWN INDICATION
     Dosage: DOSE:10 UNIT(S)
     Route: 058
     Dates: start: 20100401
  7. SOLOSTAR [Suspect]
     Dates: start: 20110822, end: 20110826
  8. DOVONEX [Concomitant]
     Indication: ECZEMA
     Route: 061
     Dates: start: 20100101
  9. ELOCON [Concomitant]
     Indication: ECZEMA
     Route: 061
     Dates: start: 20100101

REACTIONS (2)
  - ACCIDENTAL OVERDOSE [None]
  - HYPOGLYCAEMIA [None]
